FAERS Safety Report 7988145-0 (Version None)
Quarter: 2011Q4

REPORT INFORMATION
  Report Type: 
  Country: None (occurrence: None)
  Receive Date: 20111216
  Receipt Date: 20110330
  Transmission Date: 20120403
  Serious: No
  Sender: FDA-Public Use
  Company Number: US-ABBOTT-11P-163-0804374-00

PATIENT
  Sex: Female
  Weight: 68.181 kg

DRUGS (7)
  1. PRASTERONE [Concomitant]
     Indication: ADRENAL DISORDER
     Dosage: DAILY DOSE:  UNKNOWN
     Route: 065
  2. PROGESTERONE [Suspect]
     Indication: HORMONE REPLACEMENT THERAPY
     Dosage: DAILY DOSE:  UNKNOWN, AS USED: 200MG, FREQUENCY: ONCE A DAY, TAKES 400MG EVERY OTHER DAY
     Route: 065
     Dates: start: 20100501
  3. DEXTROMETHORPHAN HYDROBROMIDE AND DOXYLAMINE SUCCINATE AND EPHEDRINE S [Interacting]
     Indication: NASOPHARYNGITIS
     Dosage: DAILY DOSE:  UNKNOWN
     Route: 065
     Dates: start: 20110201, end: 20110201
  4. TESTOSTERONE [Concomitant]
     Indication: HORMONE REPLACEMENT THERAPY
     Dosage: DAILY DOSE:  UNKNOWN
     Route: 065
  5. THYROID [Concomitant]
     Indication: HYPOTHYROIDISM
     Dosage: DAILY DOSE:  UNKNOWN
     Route: 065
  6. COLECALCIFEROL [Concomitant]
     Indication: SUPPLEMENTATION THERAPY
     Dosage: DAILY DOSE:  UNKNOWN
     Route: 065
  7. CHLORPHENAMINE MALEATE AND DEXTROMETHORPHAN HYDROBROMIDE AND PARACETAM [Interacting]
     Indication: NASOPHARYNGITIS
     Dosage: DAILY DOSE:  UNKNOWN, AT 10AM
     Route: 065
     Dates: start: 20110201, end: 20110201

REACTIONS (5)
  - DISORIENTATION [None]
  - DRUG INTERACTION [None]
  - EYE MOVEMENT DISORDER [None]
  - AMNESIA [None]
  - NASOPHARYNGITIS [None]
